FAERS Safety Report 6849064-6 (Version None)
Quarter: 2010Q3

REPORT INFORMATION
  Report Type: 
  Country: None (occurrence: None)
  Receive Date: 20100716
  Receipt Date: 20070927
  Transmission Date: 20110219
  Serious: No
  Sender: FDA-Public Use
  Company Number: US-PFIZER INC-2007082201

PATIENT
  Age: 56 Year
  Sex: Female
  Weight: 90.9 kg

DRUGS (3)
  1. CHANTIX [Suspect]
  2. ALPRAZOLAM [Interacting]
     Indication: ANXIETY
  3. VENLAFAXINE HYDROCHLORIDE [Interacting]

REACTIONS (4)
  - DRUG INTERACTION [None]
  - EMERGENCY CARE [None]
  - INHIBITORY DRUG INTERACTION [None]
  - MEDICATION ERROR [None]
